FAERS Safety Report 7412294-9 (Version None)
Quarter: 2011Q2

REPORT INFORMATION
  Report Type: 
  Country: None (occurrence: None)
  Receive Date: 20110413
  Receipt Date: 20110406
  Transmission Date: 20111010
  Serious: Yes (Life-Threatening)
  Sender: FDA-Public Use
  Company Number: FR-ROCHE-769910

PATIENT
  Sex: Male

DRUGS (4)
  1. RIVOTRIL [Suspect]
     Route: 048
     Dates: start: 20110226, end: 20110227
  2. MESTINON [Concomitant]
  3. DEPAKENE [Concomitant]
  4. VALIUM [Suspect]
     Dosage: FREQ: ONCE
     Route: 054
     Dates: start: 20110226

REACTIONS (2)
  - CONTRAINDICATION TO MEDICAL TREATMENT [None]
  - RESPIRATORY FAILURE [None]
